FAERS Safety Report 9909288 (Version 3)
Quarter: 2015Q3

REPORT INFORMATION
  Report Type: Spontaneous
  Country: US (occurrence: US)
  Receive Date: 20140219
  Receipt Date: 20150811
  Transmission Date: 20151125
  Serious: No
  Sender: FDA-Public Use
  Company Number: US-GILEAD-2012-0049129

PATIENT
  Age: 75 Year
  Sex: Female

DRUGS (5)
  1. LETAIRIS [Suspect]
     Active Substance: AMBRISENTAN
     Indication: SCLERODERMA
  2. PREDNISONE. [Suspect]
     Active Substance: PREDNISONE
  3. HYDROCODONE [Suspect]
     Active Substance: HYDROCODONE
  4. ZITHROMAX [Suspect]
     Active Substance: AZITHROMYCIN DIHYDRATE
  5. LETAIRIS [Suspect]
     Active Substance: AMBRISENTAN
     Indication: PULMONARY HYPERTENSION
     Dosage: 5 MG, UNK
     Route: 048
     Dates: start: 20110429

REACTIONS (3)
  - Tremor [Unknown]
  - Confusional state [Unknown]
  - Hypoaesthesia [Unknown]
